FAERS Safety Report 5659544-7 (Version None)
Quarter: 2008Q1

REPORT INFORMATION
  Report Type: 
  Country: None (occurrence: None)
  Receive Date: 20080311
  Receipt Date: 20080304
  Transmission Date: 20080703
  Serious: Yes (Hospitalization)
  Sender: FDA-Public Use
  Company Number: US-ASTRAZENECA-2008UW04187

PATIENT
  Age: 69 Year
  Sex: Male

DRUGS (7)
  1. CRESTOR [Suspect]
     Route: 048
  2. ENALAPRIL MALEATE [Suspect]
  3. COREG [Concomitant]
  4. ASPIRIN [Concomitant]
  5. ENALAPRIL MALEATE [Concomitant]
  6. SPIRONOLACTONE [Concomitant]
  7. LASIX [Concomitant]

REACTIONS (4)
  - ANAEMIA [None]
  - HYPOVOLAEMIA [None]
  - RHABDOMYOLYSIS [None]
  - VIRAL INFECTION [None]
